FAERS Safety Report 18398727 (Version 1)
Quarter: 2020Q4

REPORT INFORMATION
  Report Type: Spontaneous
  Country: US (occurrence: US)
  Receive Date: 20201019
  Receipt Date: 20201019
  Transmission Date: 20210114
  Serious: No
  Sender: FDA-Public Use
  Company Number: US-PFIZER INC-2020401081

PATIENT
  Age: 76 Year
  Sex: Female

DRUGS (1)
  1. IBRANCE [Suspect]
     Active Substance: PALBOCICLIB
     Indication: BREAST CANCER FEMALE
     Dosage: 125 MG, CYCLIC (125 MG QD (DAILY) X 21 DAYS Q (EVERY) 28 DAYS)
     Dates: start: 20180425

REACTIONS (3)
  - Vomiting [Not Recovered/Not Resolved]
  - Diarrhoea [Not Recovered/Not Resolved]
  - Product dose omission issue [Unknown]

NARRATIVE: CASE EVENT DATE: 20201013
